FAERS Safety Report 4358366-7 (Version None)
Quarter: 2004Q2

REPORT INFORMATION
  Report Type: 
  Country: None (occurrence: None)
  Receive Date: 20040511
  Receipt Date: 20040427
  Transmission Date: 20050107
  Serious: Yes (Life-Threatening, Hospitalization)
  Sender: FDA-Public Use
  Company Number: 04P-066-0257375-00

PATIENT
  Age: 57 Year
  Sex: Female
  Weight: 64 kg

DRUGS (5)
  1. DEPAKENE [Suspect]
     Indication: EPILEPSY
     Dosage: 500 MG, 2 IN 1 D, ORAL
     Route: 048
     Dates: start: 20040205, end: 20040318
  2. DEPAKENE [Suspect]
     Indication: PROPHYLAXIS
     Dosage: 500 MG, 2 IN 1 D, ORAL
     Route: 048
     Dates: start: 20040205, end: 20040318
  3. TEMODAR [Suspect]
     Indication: GLIOBLASTOMA MULTIFORME
     Dosage: 120 MG, 1 IN 1 D, ORAL
     Route: 048
     Dates: start: 20040218, end: 20040318
  4. AMPHOTERICIN B [Suspect]
     Dates: start: 20040328, end: 20040409
  5. METHYLPREDNISOLONE [Concomitant]

REACTIONS (3)
  - HYPOKALAEMIA [None]
  - PANCYTOPENIA [None]
  - PYREXIA [None]
